FAERS Safety Report 18512821 (Version 2)
Quarter: 2020Q4

REPORT INFORMATION
  Report Type: Report from Study
  Country: US (occurrence: US)
  Receive Date: 20201117
  Receipt Date: 20201216
  Transmission Date: 20210114
  Serious: Yes (Hospitalization, Other)
  Sender: FDA-Public Use
  Company Number: US-JNJFOC-A-NJ2019-198959

PATIENT
  Age: 59 Year
  Sex: Female
  Weight: 87.99 kg

DRUGS (32)
  1. LASIX [Concomitant]
     Active Substance: FUROSEMIDE
     Dosage: 80 MG, QD
     Dates: start: 2017
  2. LASIX [Concomitant]
     Active Substance: FUROSEMIDE
     Dosage: 40 MG, BID
     Dates: start: 201912
  3. XIFAXAN [Concomitant]
     Active Substance: RIFAXIMIN
     Dosage: 550 MG, QD, PRN
     Dates: start: 2017
  4. SUPER B COMPLEX [Concomitant]
     Active Substance: CYANOCOBALAMIN\DEXPANTHENOL\NIACINAMIDE\PYRIDOXINE HYDROCHLORIDE\RIBOFLAVIN 5^-PHOSPHATE SODIUM\THIAMINE HYDROCHLORIDE\VITAMIN B COMPLEX
     Dosage: UNK
     Dates: start: 2015
  5. VITAMIN E [Concomitant]
     Active Substance: .ALPHA.-TOCOPHEROL
     Dosage: 400 IU, QD
     Dates: start: 2015
  6. FLUTICASONE. [Concomitant]
     Active Substance: FLUTICASONE
     Dosage: 50 MCG 2 SPRAYS DAILY
     Dates: start: 2017, end: 201910
  7. XIFAXAN [Concomitant]
     Active Substance: RIFAXIMIN
     Dosage: 555 MG, BID AS NEEDED
  8. CALCIUM + D3                       /09279801/ [Concomitant]
     Dosage: 500 MG, QD
     Dates: start: 2015
  9. TYVASO [Suspect]
     Active Substance: TREPROSTINIL
     Indication: PRODUCT USED FOR UNKNOWN INDICATION
     Dosage: INHALE UP TO 12 BREATHS 4 TIMES A DAY
  10. CALCIUM [Concomitant]
     Active Substance: CALCIUM
     Dosage: 500 MG, QD
     Dates: start: 2016
  11. ZYRTEC [Concomitant]
     Active Substance: CETIRIZINE HYDROCHLORIDE
     Dosage: 10 MG, QD
     Dates: start: 2017, end: 201910
  12. BENADRYL [Concomitant]
     Active Substance: DIPHENHYDRAMINE HYDROCHLORIDE
     Dosage: 25 MG, QD
     Dates: start: 2017
  13. OPSUMIT [Suspect]
     Active Substance: MACITENTAN
     Indication: PULMONARY ARTERIAL HYPERTENSION
     Dosage: 10 MG, QD
     Route: 048
     Dates: start: 20191029
  14. OMEPRAZOLE. [Concomitant]
     Active Substance: OMEPRAZOLE
     Dosage: 40 MG, QD
     Dates: start: 2015
  15. URSODIOL. [Concomitant]
     Active Substance: URSODIOL
     Dosage: 300 MG, QD
     Dates: start: 2015
  16. MECLIZINE [Concomitant]
     Active Substance: MECLIZINE HYDROCHLORIDE
     Dosage: 1 TABLET Q8H AS NEEDED
  17. TYVASO [Suspect]
     Active Substance: TREPROSTINIL
     Dosage: INHALE 10 BREATHS 4 TIMES A DAY
  18. TYVASO [Suspect]
     Active Substance: TREPROSTINIL
     Dosage: 8 BREATH FOUR TIMES DAILY
     Route: 065
  19. FISH OIL [Concomitant]
     Active Substance: FISH OIL
     Dosage: 1200 MG, QD
     Dates: start: 2016, end: 201909
  20. TYVASO [Suspect]
     Active Substance: TREPROSTINIL
     Dosage: 7 BREATH FOUR TIMES DAILY
     Route: 065
  21. TYVASO [Suspect]
     Active Substance: TREPROSTINIL
     Dosage: 6 BREATHS FOUR TIMES DAILY
     Route: 065
  22. URSODIOL. [Concomitant]
     Active Substance: URSODIOL
     Dosage: 40 MG, QD
     Dates: start: 2015
  23. DICLOFENAC [Concomitant]
     Active Substance: DICLOFENAC
     Dosage: 2 G, QID TO NECK, SHOULDER, HIPS AND KNEES
     Dates: start: 2018
  24. AZELASTINE. [Concomitant]
     Active Substance: AZELASTINE HYDROCHLORIDE
     Dosage: 0.1% 2 SPRAY EACH NOSTRIL TWICE A DAY
     Route: 045
     Dates: start: 2017, end: 201910
  25. TYVASO [Suspect]
     Active Substance: TREPROSTINIL
     Dosage: 8 BREATH FOUR TIMES DAILY
     Route: 065
  26. SPIRONOLACTONE. [Concomitant]
     Active Substance: SPIRONOLACTONE
     Dosage: 100 MG, QD
     Dates: start: 2017
  27. COMPAZINE [Concomitant]
     Active Substance: PROCHLORPERAZINE MALEATE
     Dosage: 10 MG Q8H AS NEEDED
  28. MULTIVITAMIN FOR WOMEN [Concomitant]
     Active Substance: MINERALS\VITAMINS
     Dosage: UNK UNK, QD
     Dates: start: 2015
  29. TADALAFIL. [Suspect]
     Active Substance: TADALAFIL
     Indication: PRODUCT USED FOR UNKNOWN INDICATION
     Route: 065
  30. NADOLOL. [Concomitant]
     Active Substance: NADOLOL
     Dosage: 20 MG, QD
     Dates: start: 2015
  31. VITAMIN C [Concomitant]
     Active Substance: ASCORBIC ACID
     Dosage: 125 MG, QD
     Dates: start: 2015
  32. ONDANSETRON [Concomitant]
     Active Substance: ONDANSETRON
     Dosage: 4 MG, Q6HRS AS NEEDED
     Dates: start: 20200112

REACTIONS (8)
  - Cough [Unknown]
  - Nausea [Not Recovered/Not Resolved]
  - Fatigue [Not Recovered/Not Resolved]
  - Ascites [Not Recovered/Not Resolved]
  - Headache [Recovering/Resolving]
  - Diarrhoea [Not Recovered/Not Resolved]
  - Fluid retention [Recovered/Resolved]
  - Decreased appetite [Not Recovered/Not Resolved]

NARRATIVE: CASE EVENT DATE: 20191031
